FAERS Safety Report 24900222 (Version 2)
Quarter: 2025Q2

REPORT INFORMATION
  Report Type: Spontaneous
  Country: UA (occurrence: UA)
  Receive Date: 20250129
  Receipt Date: 20250522
  Transmission Date: 20250717
  Serious: Yes (Hospitalization, Other)
  Sender: VERTEX
  Company Number: UA-VERTEX PHARMACEUTICALS-2025-001162

PATIENT
  Age: 8 Year
  Sex: Female
  Weight: 25 kg

DRUGS (11)
  1. TRIKAFTA [Suspect]
     Active Substance: ELEXACAFTOR\IVACAFTOR\TEZACAFTOR
     Indication: Cystic fibrosis
     Dosage: 2 TABS AM  (50 MG ELEXACAFTOR/ 25 MG TEZACAFTOR/ 37.5 MG IVACAFTOR), 1 TAB PM (75 MG IVACAFTOR)
     Route: 048
     Dates: start: 20240105
  2. CREON [Concomitant]
     Active Substance: PANCRELIPASE AMYLASE\PANCRELIPASE LIPASE\PANCRELIPASE PROTEASE
  3. URSODIOL [Concomitant]
     Active Substance: URSODIOL
  4. Adek [Concomitant]
     Dosage: UNK, QD1 TAB, 1 TIME PER DAY
  5. Vitacon [Concomitant]
     Dosage: 1/2 TAB, X 1 TIME PER DAY. TOGETHER WITH CREON, CONSTANTLY
  6. VITAMIN D3 [Concomitant]
     Active Substance: CHOLECALCIFEROL
     Dosage: 1 TIME PER DAY, CONTINUOUSLY
  7. SULFAMETHOXAZOLE\TRIMETHOPRIM [Concomitant]
     Active Substance: SULFAMETHOXAZOLE\TRIMETHOPRIM
     Dosage: 480 MG X 2 TIMES A DAY
  8. Forinex [Concomitant]
  9. LEVOCETIRIZINE [Concomitant]
     Active Substance: LEVOCETIRIZINE
     Dosage: 2 TIMES A DAY, AFTER MEALS, 1 MONTH
  10. NASONEX [Concomitant]
     Active Substance: MOMETASONE FUROATE
     Dosage: 2 TIMES A DOSE IN THE NOSE
  11. Hypertonic [Concomitant]

REACTIONS (3)
  - Generalised tonic-clonic seizure [Recovered/Resolved]
  - Vomiting [Recovering/Resolving]
  - Productive cough [Recovering/Resolving]

NARRATIVE: CASE EVENT DATE: 20241204
